FAERS Safety Report 12140080 (Version 1)
Quarter: 2016Q1

REPORT INFORMATION
  Report Type: Spontaneous
  Country: US (occurrence: None)
  Receive Date: 20160302
  Receipt Date: 20160302
  Transmission Date: 20160526
  Serious: No
  Sender: FDA-Public Use
  Company Number: None

PATIENT
  Age: 17 Year
  Sex: Female

DRUGS (3)
  1. TABLOID [Concomitant]
     Active Substance: THIOGUANINE
  2. MATULANE [Suspect]
     Active Substance: PROCARBAZINE HYDROCHLORIDE
     Indication: CHEMOTHERAPY
     Dosage: 50MG 2CAPPOQ6HTHEN1CAPQ6H
     Route: 048
     Dates: start: 20150908
  3. GLEOSTINE [Suspect]
     Active Substance: LOMUSTINE
     Indication: CHEMOTHERAPY
     Dosage: 100MG 2 CAPS FOR 1 DOSE ORAL
     Route: 048
     Dates: start: 20150908

REACTIONS (3)
  - Memory impairment [None]
  - Drug dose omission [None]
  - Nausea [None]

NARRATIVE: CASE EVENT DATE: 20160203
